FAERS Safety Report 14012848 (Version 2)
Quarter: 2017Q3

REPORT INFORMATION
  Report Type: Report from Study
  Country: US (occurrence: US)
  Receive Date: 20170926
  Receipt Date: 20170927
  Transmission Date: 20171128
  Serious: Yes (Other)
  Sender: FDA-Public Use
  Company Number: US-BAYER-2017-173375

PATIENT
  Age: 76 Year
  Sex: Male

DRUGS (1)
  1. STIVARGA [Suspect]
     Active Substance: REGORAFENIB
     Indication: GASTROINTESTINAL STROMAL CANCER
     Dosage: DAILY DOSE 80 MG WITH A PORK CHOP AND GRAVY MEAL
     Route: 048
     Dates: start: 20170827

REACTIONS (10)
  - Skin irritation [None]
  - Weight decreased [None]
  - Wrong technique in product usage process [None]
  - Constipation [None]
  - Oral mucosal blistering [Recovered/Resolved]
  - Dry skin [None]
  - Skin discolouration [None]
  - Decreased appetite [None]
  - Diarrhoea [None]
  - Off label use [None]
